FAERS Safety Report 4515147-9 (Version None)
Quarter: 2004Q4

REPORT INFORMATION
  Report Type: 
  Country: None (occurrence: None)
  Receive Date: 20041130
  Receipt Date: 20041130
  Transmission Date: 20050328
  Serious: No
  Sender: FDA-Public Use
  Company Number: None

PATIENT

DRUGS (7)
  1. VYTORIN [Suspect]
  2. KLONOPIN [Concomitant]
  3. ESTROGEN VAG CREAM [Concomitant]
  4. TOPROL-XL [Concomitant]
  5. NORTRIPTYLINE HCL [Concomitant]
  6. AMLODIPINE [Concomitant]
  7. BEXTRA [Concomitant]

REACTIONS (1)
  - ECZEMA [None]
